FAERS Safety Report 9033582 (Version 1)
Quarter: 2013Q1

REPORT INFORMATION
  Report Type: Spontaneous
  Country: TR (occurrence: TR)
  Receive Date: 20130128
  Receipt Date: 20130128
  Transmission Date: 20140127
  Serious: Yes (Other)
  Sender: FDA-Public Use
  Company Number: TR-BRISTOL-MYERS SQUIBB COMPANY-17299660

PATIENT
  Age: 26 Year
  Sex: Female

DRUGS (3)
  1. BARACLUDE TABS 0.5 MG [Suspect]
     Indication: CHRONIC HEPATITIS B
     Route: 048
     Dates: start: 2011, end: 201301
  2. TENOFOVIR [Suspect]
     Indication: CHRONIC HEPATITIS B
  3. STEROIDS [Suspect]

REACTIONS (1)
  - Coombs positive haemolytic anaemia [Not Recovered/Not Resolved]
